FAERS Safety Report 21387553 (Version 1)
Quarter: 2022Q3

REPORT INFORMATION
  Report Type: Spontaneous
  Country: CN (occurrence: CN)
  Receive Date: 20220928
  Receipt Date: 20220928
  Transmission Date: 20221026
  Serious: Yes (Hospitalization, Other)
  Sender: FDA-Public Use
  Company Number: CN-PFIZER INC-PV202200070194

PATIENT
  Age: 72 Year
  Sex: Male
  Weight: 60 kg

DRUGS (3)
  1. BESPONSA [Suspect]
     Active Substance: INOTUZUMAB OZOGAMICIN
     Indication: Lymphocytic leukaemia
     Dosage: 0.875 MG, 1X/DAY
     Route: 041
     Dates: start: 20220729
  2. BESPONSA [Suspect]
     Active Substance: INOTUZUMAB OZOGAMICIN
     Dosage: 0.875 MG, 1X/DAY
     Route: 041
     Dates: start: 20220901, end: 20220901
  3. BESPONSA [Suspect]
     Active Substance: INOTUZUMAB OZOGAMICIN
     Dosage: 1.147 MG, 1X/DAY
     Route: 041
     Dates: start: 20220908

REACTIONS (6)
  - Myelosuppression [Unknown]
  - Conjunctival haemorrhage [Recovering/Resolving]
  - Anal incontinence [Unknown]
  - Diarrhoea [Not Recovered/Not Resolved]
  - Abdominal pain [Unknown]
  - Faeces pale [Unknown]

NARRATIVE: CASE EVENT DATE: 20220906
